FAERS Safety Report 23691632 (Version 1)
Quarter: 2024Q2

REPORT INFORMATION
  Report Type: Spontaneous
  Country: US (occurrence: None)
  Receive Date: 20240401
  Receipt Date: 20240401
  Transmission Date: 20240716
  Serious: No
  Sender: FDA-Public Use
  Company Number: US-Encube-000649

PATIENT
  Age: 69 Year
  Sex: Female

DRUGS (5)
  1. DICLOFENAC SODIUM [Suspect]
     Active Substance: DICLOFENAC\DICLOFENAC SODIUM
     Indication: Spondylitis
     Dosage: USED HALF OF THE DOSE ON NECK
     Dates: start: 20240319, end: 20240320
  2. CALCIUM [Concomitant]
     Active Substance: CALCIUM
  3. MAGNESIUM [Concomitant]
     Active Substance: MAGNESIUM
  4. ZINC [Concomitant]
     Active Substance: PYRITHIONE ZINC\ZINC\ZINC CHLORIDE
  5. ZYRTEC [Concomitant]
     Active Substance: CETIRIZINE HYDROCHLORIDE

REACTIONS (3)
  - Rash [Not Recovered/Not Resolved]
  - Urticaria [Not Recovered/Not Resolved]
  - Off label use [Unknown]

NARRATIVE: CASE EVENT DATE: 20240301
